FAERS Safety Report 12235746 (Version 1)
Quarter: 2016Q2

REPORT INFORMATION
  Report Type: Spontaneous
  Country: US (occurrence: US)
  Receive Date: 20160404
  Receipt Date: 20160404
  Transmission Date: 20160815
  Serious: Yes (Other)
  Sender: FDA-Public Use
  Company Number: US-OTSUKA-2016_007340

PATIENT
  Age: 10 Year
  Sex: Male

DRUGS (1)
  1. REXULTI [Suspect]
     Active Substance: BREXPIPRAZOLE
     Indication: AUTISM
     Dosage: 1 MG, QD
     Route: 048

REACTIONS (4)
  - Oculogyric crisis [Recovered/Resolved]
  - Drug administered to patient of inappropriate age [Unknown]
  - Eye movement disorder [Recovered/Resolved]
  - Off label use [Unknown]
